FAERS Safety Report 23118405 (Version 1)
Quarter: 2023Q4

REPORT INFORMATION
  Report Type: Spontaneous
  Country: US (occurrence: US)
  Receive Date: 20231028
  Receipt Date: 20231028
  Transmission Date: 20240110
  Serious: No
  Sender: FDA-Public Use
  Company Number: US-GSK-US2023143816

PATIENT
  Sex: Female

DRUGS (6)
  1. LAMICTAL [Suspect]
     Active Substance: LAMOTRIGINE
     Indication: Seizure
     Dosage: 200 MG, TID
     Dates: start: 2020
  2. LAMICTAL XR [Suspect]
     Active Substance: LAMOTRIGINE
     Indication: Epilepsy
     Dosage: 200 MG
  3. LEVOTHYROXINE [Concomitant]
     Active Substance: LEVOTHYROXINE
     Indication: Hypothyroidism
     Dosage: 50 UG, QD
  4. ZONISAMIDE [Concomitant]
     Active Substance: ZONISAMIDE
     Indication: Seizure
     Dosage: 100 MG, QD
  5. FYCOMPA [Concomitant]
     Active Substance: PERAMPANEL
     Indication: Seizure
     Dosage: 8 MG, QD
  6. PANTOPRAZOLE [Concomitant]
     Active Substance: PANTOPRAZOLE
     Indication: Abdominal pain upper
     Dosage: 40 MG, QD

REACTIONS (2)
  - Intentional product misuse [Unknown]
  - Product prescribing issue [Unknown]
